FAERS Safety Report 11915207 (Version 1)
Quarter: 2016Q1

REPORT INFORMATION
  Report Type: Spontaneous
  Country: GB (occurrence: GB)
  Receive Date: 20160114
  Receipt Date: 20160114
  Transmission Date: 20160526
  Serious: Yes (Other)
  Sender: FDA-Public Use
  Company Number: GB-ROCHE-1607384

PATIENT
  Sex: Female

DRUGS (1)
  1. HERCEPTIN [Suspect]
     Active Substance: TRASTUZUMAB
     Indication: PRODUCT USED FOR UNKNOWN INDICATION
     Route: 058

REACTIONS (7)
  - Rash pruritic [Recovered/Resolved]
  - Fatigue [Unknown]
  - Metastases to lung [Unknown]
  - Lung disorder [Unknown]
  - Dyspnoea exertional [Unknown]
  - Insomnia [Unknown]
  - Night sweats [Unknown]
